FAERS Safety Report 7092501-5 (Version None)
Quarter: 2010Q4

REPORT INFORMATION
  Report Type: 
  Country: None (occurrence: None)
  Receive Date: 20101108
  Receipt Date: 20101108
  Transmission Date: 20110411
  Serious: Yes (Hospitalization)
  Sender: FDA-Public Use
  Company Number: None

PATIENT
  Age: 20 Year
  Sex: Female
  Weight: 58.9676 kg

DRUGS (4)
  1. RISPERIDONE [Suspect]
     Indication: ASPERGER'S DISORDER
     Dosage: 1 MG BEDTIME PO
     Route: 048
     Dates: start: 20070705, end: 20101025
  2. RISPERIDONE [Suspect]
     Indication: DEPRESSION
     Dosage: 1 MG BEDTIME PO
     Route: 048
     Dates: start: 20070705, end: 20101025
  3. RISPERIDONE [Suspect]
     Indication: ASPERGER'S DISORDER
     Dosage: .25 MG MORNING PO
     Route: 048
     Dates: start: 20090705, end: 20101025
  4. RISPERIDONE [Suspect]
     Indication: DEPRESSION
     Dosage: .25 MG MORNING PO
     Route: 048
     Dates: start: 20090705, end: 20101025

REACTIONS (16)
  - ABDOMINAL PAIN [None]
  - CONSTIPATION [None]
  - DIZZINESS [None]
  - DRUG WITHDRAWAL SYNDROME [None]
  - DYSARTHRIA [None]
  - DYSKINESIA [None]
  - EYE DISORDER [None]
  - GAIT DISTURBANCE [None]
  - HAEMATOCHEZIA [None]
  - HALLUCINATIONS, MIXED [None]
  - HEADACHE [None]
  - INSOMNIA [None]
  - LIVER FUNCTION TEST ABNORMAL [None]
  - MICTURITION URGENCY [None]
  - PYREXIA [None]
  - URINARY INCONTINENCE [None]
